FAERS Safety Report 13670273 (Version 1)
Quarter: 2017Q2

REPORT INFORMATION
  Report Type: Report from Study
  Country: US (occurrence: US)
  Receive Date: 20170620
  Receipt Date: 20170620
  Transmission Date: 20170830
  Serious: Yes (Hospitalization)
  Sender: FDA-Public Use
  Company Number: US-EISAI MEDICAL RESEARCH-EC-2017-028400

PATIENT
  Age: 64 Year
  Sex: Female
  Weight: 79.5 kg

DRUGS (15)
  1. SYNTHROID [Concomitant]
     Active Substance: LEVOTHYROXINE SODIUM
  2. PEPCID [Concomitant]
     Active Substance: FAMOTIDINE
  3. GLUCOPHAGE [Concomitant]
     Active Substance: METFORMIN HYDROCHLORIDE
  4. LENVATINIB [Suspect]
     Active Substance: LENVATINIB
     Indication: HEPATOCELLULAR CARCINOMA
  5. PROTONIX [Concomitant]
     Active Substance: PANTOPRAZOLE SODIUM
  6. LENVATINIB [Suspect]
     Active Substance: LENVATINIB
     Indication: BREAST CANCER
     Route: 048
     Dates: start: 20170415, end: 20170605
  7. ERIBULIN [Suspect]
     Active Substance: ERIBULIN
     Indication: HEPATOCELLULAR CARCINOMA
  8. CARAFATE [Concomitant]
     Active Substance: SUCRALFATE
  9. FLONASE [Concomitant]
     Active Substance: FLUTICASONE PROPIONATE
  10. HYDROCODONE-ACETAMINOPHEN [Concomitant]
     Active Substance: ACETAMINOPHEN\HYDROCODONE
  11. EMLA [Concomitant]
     Active Substance: LIDOCAINE\PRILOCAINE
  12. ERIBULIN [Suspect]
     Active Substance: ERIBULIN
     Indication: BREAST CANCER
     Route: 041
     Dates: start: 20170414, end: 20170605
  13. CHERATUSSIN AC [Concomitant]
     Active Substance: CODEINE PHOSPHATE\GUAIFENESIN
  14. FENTANYL TD [Concomitant]
  15. CHRONULAC [Concomitant]
     Active Substance: LACTULOSE

REACTIONS (2)
  - Decreased appetite [Recovering/Resolving]
  - Odynophagia [Recovering/Resolving]

NARRATIVE: CASE EVENT DATE: 20170603
